FAERS Safety Report 19091773 (Version 1)
Quarter: 2021Q2

REPORT INFORMATION
  Report Type: Spontaneous
  Country: US (occurrence: US)
  Receive Date: 20210402
  Receipt Date: 20210402
  Transmission Date: 20210717
  Serious: Yes (Hospitalization)
  Sender: FDA-Public Use
  Company Number: None

PATIENT
  Age: 38 Year
  Sex: Female

DRUGS (21)
  1. SILDENAFIL 2MG TAB [Suspect]
     Active Substance: SILDENAFIL
     Indication: PULMONARY HYPERTENSION
     Route: 048
     Dates: start: 20170429
  2. METOPROLOL. [Concomitant]
     Active Substance: METOPROLOL
  3. OYSCO 500+D [Concomitant]
  4. BUMETANIDE. [Concomitant]
     Active Substance: BUMETANIDE
  5. FEROSUL [Concomitant]
     Active Substance: FERROUS SULFATE
  6. IRON [Concomitant]
     Active Substance: IRON
  7. LACTOSE HYDROUS [Concomitant]
  8. TORSEMIDE. [Concomitant]
     Active Substance: TORSEMIDE
  9. MECLIZINE [Concomitant]
     Active Substance: MECLIZINE HYDROCHLORIDE
  10. ALENDRONATE [Concomitant]
     Active Substance: ALENDRONATE SODIUM
  11. APAP/CODEINE [Concomitant]
     Active Substance: ACETAMINOPHEN\CODEINE PHOSPHATE
  12. ASPIRIN. [Concomitant]
     Active Substance: ASPIRIN
  13. LISINOPRIL. [Concomitant]
     Active Substance: LISINOPRIL
  14. OMEPRAZOLE. [Concomitant]
     Active Substance: OMEPRAZOLE
  15. ATORVASTATIN [Concomitant]
     Active Substance: ATORVASTATIN
  16. HYDROXYCHLOR [Concomitant]
     Active Substance: HYDROXYCHLOROQUINE
  17. LEVOTHYROXIN [Concomitant]
     Active Substance: LEVOTHYROXINE
  18. SOTALOL HCL [Concomitant]
     Active Substance: SOTALOL
  19. SULFASALAZINE DELAYED?RELEASE [Concomitant]
     Active Substance: SULFASALAZINE
  20. ALLOPURINOL. [Concomitant]
     Active Substance: ALLOPURINOL
  21. TRAMADOL HCL [Concomitant]
     Active Substance: TRAMADOL HYDROCHLORIDE

REACTIONS (1)
  - Transient ischaemic attack [None]

NARRATIVE: CASE EVENT DATE: 20210310
